FAERS Safety Report 9526336 (Version 1)
Quarter: 2013Q1

REPORT INFORMATION
  Report Type: Spontaneous
  Country: US (occurrence: None)
  Receive Date: 20130305
  Receipt Date: 20130305
  Transmission Date: 20140127
  Serious: Yes (Disabling)
  Sender: FDA-Public Use
  Company Number: 163-21880-12030812

PATIENT
  Age: 68 Year
  Sex: Male
  Weight: 127.01 kg

DRUGS (3)
  1. REVLIMID (LENALIDOMIDE) (25 MILLIGRAM, CAPSULES) [Suspect]
     Indication: PLASMA CELL MYELOMA
     Route: 048
     Dates: start: 201105, end: 201108
  2. DEXAMETHASONE (DEXAMETHASONE) [Concomitant]
  3. MELPHALAN [Concomitant]

REACTIONS (2)
  - Neuropathy peripheral [None]
  - Pain in extremity [None]
